FAERS Safety Report 9675371 (Version 3)
Quarter: 2013Q4

REPORT INFORMATION
  Report Type: Spontaneous
  Country: US (occurrence: US)
  Receive Date: 20131107
  Receipt Date: 20131212
  Transmission Date: 20140711
  Serious: No
  Sender: FDA-Public Use
  Company Number: US-PFIZER INC-2013317425

PATIENT
  Sex: Female

DRUGS (4)
  1. NEURONTIN [Suspect]
     Dosage: 100 MG, 1X/DAY
  2. NEURONTIN [Suspect]
     Dosage: 100 MG, 2X/DAY
  3. ENABLEX [Concomitant]
     Indication: HYPERTONIC BLADDER
     Dosage: 15 MG, 1X/DAY
  4. PROTONIX [Concomitant]
     Dosage: UNK

REACTIONS (2)
  - Burning sensation [Unknown]
  - Muscle spasms [Recovered/Resolved]
